FAERS Safety Report 8492465-3 (Version None)
Quarter: 2012Q2

REPORT INFORMATION
  Report Type: 
  Country: None (occurrence: None)
  Receive Date: 20120629
  Receipt Date: 20120629
  Transmission Date: 20120825
  Serious: Yes (Hospitalization)
  Sender: FDA-Public Use
  Company Number: None

PATIENT
  Age: 70 Year
  Sex: Male
  Weight: 89.5 kg

DRUGS (1)
  1. WARFARIN SODIUM [Suspect]
     Dates: start: 20120409

REACTIONS (2)
  - INTERNATIONAL NORMALISED RATIO INCREASED [None]
  - HAEMOGLOBIN DECREASED [None]
